FAERS Safety Report 8343488-6 (Version None)
Quarter: 2012Q2

REPORT INFORMATION
  Report Type: 
  Country: None (occurrence: None)
  Receive Date: 20120508
  Receipt Date: 20120504
  Transmission Date: 20120825
  Serious: Yes (Death, Hospitalization, Other)
  Sender: FDA-Public Use
  Company Number: PHHY2011BR097692

PATIENT
  Sex: Male

DRUGS (13)
  1. SANDOSTATIN LAR [Suspect]
     Indication: BLOOD GROWTH HORMONE INCREASED
  2. DIGOXIN [Concomitant]
     Indication: CARDIAC DISORDER
     Dosage: 0.5 DF, (HALF TABLET DAILY)
     Route: 048
  3. WARFARIN SODIUM [Concomitant]
     Indication: HYPERCOAGULATION
  4. DOSTINEX [Concomitant]
     Indication: HORMONE LEVEL ABNORMAL
     Dosage: 3 DF, (3 TABLET A WEEK)
     Route: 048
  5. LOSARTAN POTASSIUM [Concomitant]
     Indication: CARDIAC DISORDER
     Dosage: 50 MG, (1 TABLET DAILY)
     Route: 048
  6. ALDOSTERONE [Concomitant]
     Indication: CARDIAC DISORDER
     Dosage: 200 MG, (1 TABLET DAILY)
     Route: 048
  7. SANDOSTATIN [Concomitant]
     Indication: ACROMEGALY
     Dosage: 1 DF, (20 EACH 28 DAYS)
  8. CAPTOPRIL [Concomitant]
     Indication: BLOOD PRESSURE
     Dosage: 50 MG, (1 TABLET DAILY)
     Route: 048
  9. CARVEDILOL [Concomitant]
  10. AMIODARONE HCL [Concomitant]
  11. ALDACTONE [Concomitant]
     Indication: CARDIAC DISORDER
     Dosage: 25 MG, (1 TABLET DAILY)
     Route: 048
  12. METOPROLOL TARTRATE [Concomitant]
     Indication: BLOOD PRESSURE
     Dosage: 50 MG, (1 TABLET DAILY)
     Route: 048
  13. SANDOSTATIN [Concomitant]
     Dosage: 2 DF, (20 EACH 28 DAYS)

REACTIONS (7)
  - RESPIRATORY FAILURE [None]
  - INTESTINAL INFARCTION [None]
  - DYSPNOEA [None]
  - CARDIAC FAILURE [None]
  - FATIGUE [None]
  - CARDIOMEGALY [None]
  - MALAISE [None]
